FAERS Safety Report 24732686 (Version 1)
Quarter: 2024Q4

REPORT INFORMATION
  Report Type: Spontaneous
  Country: US (occurrence: US)
  Receive Date: 20241213
  Receipt Date: 20241213
  Transmission Date: 20250114
  Serious: No
  Sender: PERRIGO
  Company Number: US-PERRIGO-24US007189

PATIENT

DRUGS (2)
  1. GUAIFENESIN [Suspect]
     Active Substance: GUAIFENESIN
     Indication: Paranasal sinus discomfort
     Dosage: UNKNOWN, UNKNOWN
     Route: 048
  2. GUAIFENESIN [Suspect]
     Active Substance: GUAIFENESIN
     Indication: Rhinorrhoea

REACTIONS (2)
  - Drug ineffective [Unknown]
  - Product use in unapproved indication [Unknown]
